FAERS Safety Report 5790289-9 (Version None)
Quarter: 2008Q2

REPORT INFORMATION
  Report Type: 
  Country: None (occurrence: None)
  Receive Date: 20080626
  Receipt Date: 20080617
  Transmission Date: 20081010
  Serious: Yes (Death, Other)
  Sender: FDA-Public Use
  Company Number: US-BAYER-200820814GPV

PATIENT
  Age: 16 Month
  Sex: Male

DRUGS (4)
  1. FLUDARABINE PHOSPHATE [Suspect]
     Indication: STEM CELL TRANSPLANT
  2. BUSULFAN [Suspect]
     Indication: STEM CELL TRANSPLANT
     Route: 065
  3. RABBIT ATG [Suspect]
     Indication: STEM CELL TRANSPLANT
     Route: 065
  4. CYCLOSPORINE [Suspect]
     Indication: PROPHYLAXIS AGAINST GRAFT VERSUS HOST DISEASE
     Route: 065

REACTIONS (6)
  - ADENOVIRUS INFECTION [None]
  - DIARRHOEA [None]
  - MULTI-ORGAN FAILURE [None]
  - RHINORRHOEA [None]
  - SEPSIS [None]
  - VOMITING [None]
